FAERS Safety Report 20478835 (Version 2)
Quarter: 2022Q1

REPORT INFORMATION
  Report Type: Spontaneous
  Country: FR (occurrence: FR)
  Receive Date: 20220216
  Receipt Date: 20220302
  Transmission Date: 20220423
  Serious: Yes (Hospitalization, Other)
  Sender: FDA-Public Use
  Company Number: FR-SA-SAC20220209000043

PATIENT
  Sex: Male

DRUGS (1)
  1. DUPIXENT [Suspect]
     Active Substance: DUPILUMAB
     Indication: Asthma
     Dosage: 300 MG
     Dates: start: 2021, end: 202111

REACTIONS (4)
  - Appendicitis [Not Recovered/Not Resolved]
  - Clostridium colitis [Not Recovered/Not Resolved]
  - Asthma [Unknown]
  - Therapy cessation [Unknown]
